FAERS Safety Report 9459961 (Version 2)
Quarter: 2013Q4

REPORT INFORMATION
  Report Type: Report from Study
  Country: DE (occurrence: DE)
  Receive Date: 20130815
  Receipt Date: 20131112
  Transmission Date: 20140711
  Serious: Yes (Other)
  Sender: FDA-Public Use
  Company Number: DE-INCYTE CORPORATION-2013IN001829

PATIENT
  Sex: Female
  Weight: 65 kg

DRUGS (12)
  1. INCB018424 [Suspect]
     Indication: MYELOFIBROSIS
     Dosage: 20 MG, BID (2 DF PER DAY)
     Route: 048
     Dates: start: 20121031, end: 20121125
  2. INCB018424 [Suspect]
     Dosage: 20 MG, BID (2 DF PER DAY)
     Route: 048
     Dates: start: 20121201, end: 20130520
  3. INCB018424 [Suspect]
     Dosage: 20 MG, BID (2 DF PER DAY)
     Route: 048
     Dates: start: 20130526, end: 20130826
  4. INCB018424 [Suspect]
     Dosage: 20 MG, QD (1DF PER DAY)
     Route: 048
     Dates: start: 20130827
  5. BLOOD TRANSFUSION, AUXILIARY PRODUCTS [Concomitant]
     Dosage: UNK
     Dates: start: 20121221, end: 20130315
  6. BISOPROLOL [Concomitant]
     Dosage: UNK
     Dates: start: 20121017
  7. RAMIPRIL PLUS [Concomitant]
     Dosage: UNK
     Dates: start: 20121017
  8. NOVAMINSULFON [Concomitant]
     Dosage: UNK
     Dates: start: 20121017
  9. RAMIPRIL [Concomitant]
     Dosage: UNK
     Dates: start: 20121031
  10. EBRANTIL [Concomitant]
     Dosage: UNK
     Dates: start: 20121125, end: 20121125
  11. HALOPERIDOL [Concomitant]
     Dosage: UNK
     Dates: start: 20121205
  12. OXYGESIC AKUT [Concomitant]
     Dosage: UNK
     Dates: start: 20121205

REACTIONS (1)
  - Nausea [Recovered/Resolved]
